FAERS Safety Report 5061329-X (Version None)
Quarter: 2006Q3

REPORT INFORMATION
  Report Type: 
  Country: None (occurrence: None)
  Receive Date: 20060719
  Receipt Date: 20060719
  Transmission Date: 20061208
  Serious: Yes (Hospitalization)
  Sender: FDA-Public Use
  Company Number: None

PATIENT
  Sex: Male
  Weight: 98.4306 kg

DRUGS (4)
  1. SPIRONOLACTONE [Suspect]
     Indication: BLOOD PRESSURE
     Dosage: 25MG BY MOUTH DAILY
     Route: 048
     Dates: start: 20060228, end: 20060504
  2. SPIRONOLACTONE [Suspect]
     Indication: CARDIAC FAILURE
     Dosage: 25MG BY MOUTH DAILY
     Route: 048
     Dates: start: 20060228, end: 20060504
  3. LISINOPRIL [Suspect]
     Indication: BLOOD PRESSURE
     Dosage: 40 MG BY MOUTH DAILY
     Route: 048
     Dates: start: 20051209, end: 20060504
  4. LISINOPRIL [Suspect]
     Indication: CARDIAC FAILURE
     Dosage: 40 MG BY MOUTH DAILY
     Route: 048
     Dates: start: 20051209, end: 20060504

REACTIONS (2)
  - HYPERVOLAEMIA [None]
  - RENAL FAILURE ACUTE [None]
